FAERS Safety Report 7639262-6 (Version None)
Quarter: 2011Q3

REPORT INFORMATION
  Report Type: 
  Country: None (occurrence: None)
  Receive Date: 20110721
  Receipt Date: 20110714
  Transmission Date: 20111222
  Serious: Yes (Other)
  Sender: FDA-Public Use
  Company Number: TRP_07831_2011

PATIENT
  Age: 61 Year
  Sex: Female

DRUGS (3)
  1. INSULIN [Concomitant]
  2. RIBAVIRIN [Suspect]
     Indication: HEPATITIS C
     Dosage: DF
     Dates: start: 20061001, end: 20070101
  3. INTERFERON ALFA [Suspect]
     Indication: HEPATITIS C
     Dosage: DF
     Dates: start: 20061001, end: 20070101

REACTIONS (2)
  - SUDDEN VISUAL LOSS [None]
  - RETINAL DETACHMENT [None]
